FAERS Safety Report 13581672 (Version 1)
Quarter: 2017Q2

REPORT INFORMATION
  Report Type: Spontaneous
  Country: US (occurrence: US)
  Receive Date: 20170525
  Receipt Date: 20170525
  Transmission Date: 20170830
  Serious: No
  Sender: FDA-Public Use
  Company Number: US-COVIS PHARMA S.A.R.L.-2016COV00012

PATIENT
  Age: 74 Year
  Sex: Female
  Weight: 47.62 kg

DRUGS (3)
  1. LETAIRIS [Concomitant]
     Active Substance: AMBRISENTAN
  2. DIGOXIN. [Suspect]
     Active Substance: DIGOXIN
     Dosage: UNK
     Dates: end: 201603
  3. TYVASO [Suspect]
     Active Substance: TREPROSTINIL
     Indication: PULMONARY HYPERTENSION
     Dosage: 18-54 MCG, 4X/DAY
     Dates: start: 20110920

REACTIONS (1)
  - Palpitations [Unknown]

NARRATIVE: CASE EVENT DATE: 201604
